FAERS Safety Report 21522177 (Version 1)
Quarter: 2022Q4

REPORT INFORMATION
  Report Type: Spontaneous
  Country: US (occurrence: US)
  Receive Date: 20221028
  Receipt Date: 20221028
  Transmission Date: 20230113
  Serious: Yes (Other)
  Sender: FDA-Public Use
  Company Number: US-MALLINCKRODT-T202205716

PATIENT
  Age: 14 Month
  Sex: Female

DRUGS (1)
  1. NITRIC OXIDE [Suspect]
     Active Substance: NITRIC OXIDE
     Indication: Acute respiratory distress syndrome
     Dosage: UNK (INHALATION)
     Route: 055

REACTIONS (9)
  - Ascites [Unknown]
  - Abdominal compartment syndrome [Unknown]
  - Hypoxia [Recovering/Resolving]
  - Pneumothorax spontaneous [Unknown]
  - Pulmonary necrosis [Unknown]
  - Pleural effusion [Unknown]
  - Hypotension [Recovering/Resolving]
  - Product use issue [Unknown]
  - Product use in unapproved indication [Unknown]
